FAERS Safety Report 6238886-0 (Version None)
Quarter: 2009Q2

REPORT INFORMATION
  Report Type: 
  Country: None (occurrence: None)
  Receive Date: 20090617
  Receipt Date: 20090617
  Transmission Date: 20091009
  Serious: No
  Sender: FDA-Public Use
  Company Number: None

PATIENT
  Age: 65 Year
  Sex: Female
  Weight: 67.1324 kg

DRUGS (1)
  1. LEVAQUIN [Suspect]
     Indication: SINUSITIS
     Dosage: 1 PILL PER DAY FOR 7 DAYS ONE PER DAY PO
     Route: 048
     Dates: start: 20090425, end: 20090501

REACTIONS (6)
  - ABDOMINAL PAIN [None]
  - ARTHRALGIA [None]
  - ASTHENIA [None]
  - MUSCLE DISORDER [None]
  - MYALGIA [None]
  - WEIGHT BEARING DIFFICULTY [None]
